FAERS Safety Report 22103040 (Version 2)
Quarter: 2023Q4

REPORT INFORMATION
  Report Type: Spontaneous
  Country: US (occurrence: US)
  Receive Date: 20230316
  Receipt Date: 20231120
  Transmission Date: 20240110
  Serious: Yes (Hospitalization)
  Sender: FDA-Public Use
  Company Number: US-ENDO PHARMACEUTICALS INC-2023-001194

PATIENT
  Age: 38 Year
  Sex: Male

DRUGS (6)
  1. DEXMEDETOMIDINE HYDROCHLORIDE [Suspect]
     Active Substance: DEXMEDETOMIDINE HYDROCHLORIDE
     Indication: Sedative therapy
     Dosage: UNK UNKNOWN, INFUSION (1 MCG/KG PER HOUR)
     Route: 042
  2. DEXMEDETOMIDINE HYDROCHLORIDE [Suspect]
     Active Substance: DEXMEDETOMIDINE HYDROCHLORIDE
     Dosage: UNK UNKNOWN, INFUSION (HIGH DOSES, AS HIGH AS 1.3 MCG/KG PER HOUR)
     Route: 042
  3. PROPOFOL [Concomitant]
     Active Substance: PROPOFOL
     Indication: Sedative therapy
     Dosage: UNK UNKNOWN, INFUSION (AS HIGH AS 80 MCG/KG PER MINUTE)
     Route: 042
  4. PROPOFOL [Concomitant]
     Active Substance: PROPOFOL
     Dosage: UNK UNKNOWN, INFUSION (TAPERED OFF OVER THE NEXT THREE DAYS)
     Route: 042
  5. MIDAZOLAM [Concomitant]
     Active Substance: MIDAZOLAM
     Indication: Sedative therapy
     Dosage: UNK UNKNOWN, PRN (AS NEEDED)
     Route: 040
  6. LORAZEPAM [Concomitant]
     Active Substance: LORAZEPAM
     Indication: Sedative therapy
     Dosage: UNK UNKNOWN, PRN (AS NEEDED)
     Route: 040

REACTIONS (2)
  - Arteriospasm coronary [Recovered/Resolved]
  - Withdrawal syndrome [Recovered/Resolved]
